FAERS Safety Report 10447274 (Version 1)
Quarter: 2014Q3

REPORT INFORMATION
  Report Type: Spontaneous
  Country: CA (occurrence: None)
  Receive Date: 20140909
  Receipt Date: 20140909
  Transmission Date: 20150326
  Serious: Yes (Hospitalization)
  Sender: FDA-Public Use
  Company Number: CA-017002

PATIENT
  Age: 82 Year
  Sex: Male

DRUGS (8)
  1. BAYER CITRACAL VITAMIN D [Concomitant]
  2. FIRMAGON [Suspect]
     Active Substance: DEGARELIX ACETATE
     Indication: PROSTATE CANCER
     Route: 058
     Dates: start: 20140705
  3. ATORVASTATIN CALCIUM. [Concomitant]
     Active Substance: ATORVASTATIN CALCIUM
  4. TAMSULOSIN HCL [Concomitant]
     Active Substance: TAMSULOSIN
  5. DILTIAZEM HCL [Concomitant]
     Active Substance: DILTIAZEM HYDROCHLORIDE
  6. CALCIUM [Concomitant]
     Active Substance: CALCIUM
  7. BICALUTAMIDE. [Suspect]
     Active Substance: BICALUTAMIDE
  8. BISOPROLOL FUMARATE. [Concomitant]
     Active Substance: BISOPROLOL FUMARATE

REACTIONS (2)
  - Pain [None]
  - Malaise [None]

NARRATIVE: CASE EVENT DATE: 20140827
